FAERS Safety Report 4325007-4 (Version None)
Quarter: 2004Q1

REPORT INFORMATION
  Report Type: 
  Country: None (occurrence: None)
  Receive Date: 20040326
  Receipt Date: 20040326
  Transmission Date: 20041129
  Serious: No
  Sender: FDA-Public Use
  Company Number: None

PATIENT
  Age: 16 Year
  Sex: Female
  Weight: 54.4316 kg

DRUGS (1)
  1. DROSPIRENONE 3.0 MG YASMIN [Suspect]
     Indication: CONTRACEPTION
     Dosage: 1 TABLET 1X A DAY ORAL
     Route: 048
     Dates: start: 20031101, end: 20040325

REACTIONS (3)
  - INFECTION [None]
  - INTENTIONAL SELF-INJURY [None]
  - SCRATCH [None]
